FAERS Safety Report 4579899-4 (Version None)
Quarter: 2005Q1

REPORT INFORMATION
  Report Type: 
  Country: None (occurrence: None)
  Receive Date: 20050210
  Receipt Date: 20050128
  Transmission Date: 20050727
  Serious: Yes (Other)
  Sender: FDA-Public Use
  Company Number: 2005025656

PATIENT
  Age: 70 Year
  Sex: Female

DRUGS (3)
  1. NORVASC [Suspect]
     Indication: ILL-DEFINED DISORDER
     Dosage: 5 MG DAILY, ORAL
     Route: 048
     Dates: start: 20041015
  2. FENOFIBRATE [Suspect]
     Indication: ILL-DEFINED DISORDER
     Dates: start: 20050101
  3. PROVASTATIN SODIUM (PRAVASTATIN SODIUM) [Concomitant]

REACTIONS (3)
  - ALANINE AMINOTRANSFERASE INCREASED [None]
  - ASPARTATE AMINOTRANSFERASE INCREASED [None]
  - BLOOD CHOLESTEROL INCREASED [None]
